FAERS Safety Report 7710438-2 (Version None)
Quarter: 2011Q3

REPORT INFORMATION
  Report Type: 
  Country: None (occurrence: None)
  Receive Date: 20110825
  Receipt Date: 20110815
  Transmission Date: 20111222
  Serious: Yes (Other)
  Sender: FDA-Public Use
  Company Number: US-ELI_LILLY_AND_COMPANY-US201108006961

PATIENT
  Age: 83 Year
  Sex: Male

DRUGS (2)
  1. EFFIENT [Suspect]
     Dosage: 5 MG, UNKNOWN
  2. ASPIRIN [Concomitant]
     Indication: ANTIPLATELET THERAPY
     Dosage: UNK, UNKNOWN

REACTIONS (1)
  - THROMBOTIC STROKE [None]
